FAERS Safety Report 16086296 (Version 1)
Quarter: 2019Q1

REPORT INFORMATION
  Report Type: Spontaneous
  Country: RU (occurrence: RU)
  Receive Date: 20190318
  Receipt Date: 20190318
  Transmission Date: 20190418
  Serious: Yes (Hospitalization)
  Sender: FDA-Public Use
  Company Number: RU-B. BRAUN MEDICAL INC.-2064218

PATIENT
  Age: 58 Year
  Sex: Female

DRUGS (3)
  1. DEXTROSE INJECTIONS USP 0264-7510-00 0264-7510-20 [Suspect]
     Active Substance: DEXTROSE
     Indication: ENCEPHALOPATHY
  2. CYTOFLAVIN [Concomitant]
  3. ACTRAPID [Concomitant]
     Active Substance: INSULIN HUMAN

REACTIONS (4)
  - Blood pressure increased [None]
  - Depressed level of consciousness [None]
  - Erythema [None]
  - Muscle spasms [None]
